FAERS Safety Report 6430016-5 (Version None)
Quarter: 2009Q4

REPORT INFORMATION
  Report Type: 
  Country: None (occurrence: None)
  Receive Date: 20091103
  Receipt Date: 20091019
  Transmission Date: 20100525
  Serious: Yes (Hospitalization)
  Sender: FDA-Public Use
  Company Number: 02100-JPN-04-0243

PATIENT
  Age: 63 Year
  Sex: Male
  Weight: 63 kg

DRUGS (5)
  1. PLETAL [Suspect]
     Indication: THROMBOTIC STROKE
     Dosage: 81 MG, QD
     Dates: start: 20031227, end: 20040830
  2. LIORESAL [Concomitant]
  3. LOSARTAN POTASSIUM [Concomitant]
  4. TIZANIDINE HCL [Concomitant]
  5. PURSENNID (SENNOSIDE) TABLET [Concomitant]

REACTIONS (1)
  - MUSCLE HAEMORRHAGE [None]
